FAERS Safety Report 6516158-4 (Version None)
Quarter: 2009Q4

REPORT INFORMATION
  Report Type: 
  Country: None (occurrence: None)
  Receive Date: 20091214
  Receipt Date: 20090518
  Transmission Date: 20100525
  Serious: Yes (Other)
  Sender: FDA-Public Use
  Company Number: US-JNJFOC-20090504644

PATIENT
  Age: 24 Month
  Sex: Male
  Weight: 13.6079 kg

DRUGS (1)
  1. PEPCID COMPLETE BERRY [Suspect]
     Indication: ACCIDENTAL EXPOSURE
     Dosage: 2-3 TABLETS
     Dates: start: 20090518, end: 20090518

REACTIONS (2)
  - ACCIDENTAL DRUG INTAKE BY CHILD [None]
  - ACCIDENTAL OVERDOSE [None]
